FAERS Safety Report 6338341-3 (Version None)
Quarter: 2009Q3

REPORT INFORMATION
  Report Type: 
  Country: None (occurrence: None)
  Receive Date: 20090902
  Receipt Date: 20090826
  Transmission Date: 20100115
  Serious: Yes (Other)
  Sender: FDA-Public Use
  Company Number: DK-AVENTIS-200919609GDDC

PATIENT
  Age: 63 Year
  Sex: Male
  Weight: 112 kg

DRUGS (5)
  1. LANTUS [Suspect]
     Indication: DIABETES MELLITUS
     Route: 058
     Dates: start: 20081029, end: 20090818
  2. MAGNYL [Concomitant]
     Dates: start: 20030211
  3. MULTI-VITAMINS [Concomitant]
  4. CRESTOR [Concomitant]
     Dates: start: 20090812
  5. METFORMIN HCL [Concomitant]
     Dates: start: 20030211

REACTIONS (1)
  - OESOPHAGEAL CARCINOMA [None]
